FAERS Safety Report 24083910 (Version 1)
Quarter: 2024Q3

REPORT INFORMATION
  Report Type: Report from Study
  Country: IT (occurrence: IT)
  Receive Date: 20240712
  Receipt Date: 20240712
  Transmission Date: 20241017
  Serious: Yes (Other)
  Sender: ROCHE
  Company Number: IT-ROCHE-10000014768

PATIENT

DRUGS (2)
  1. ATEZOLIZUMAB [Suspect]
     Active Substance: ATEZOLIZUMAB
     Indication: Hepatocellular carcinoma
     Route: 042
  2. BEVACIZUMAB [Suspect]
     Active Substance: BEVACIZUMAB
     Indication: Hepatocellular carcinoma
     Route: 042

REACTIONS (7)
  - Diarrhoea [Unknown]
  - Fatigue [Unknown]
  - Hypertension [Unknown]
  - Decreased appetite [Unknown]
  - Proteinuria [Unknown]
  - Hypothyroidism [Unknown]
  - Toxicity to various agents [Unknown]
